FAERS Safety Report 4656413-6 (Version None)
Quarter: 2005Q2

REPORT INFORMATION
  Report Type: 
  Country: None (occurrence: None)
  Receive Date: 20050509
  Receipt Date: 20050427
  Transmission Date: 20051028
  Serious: Yes (Disabling)
  Sender: FDA-Public Use
  Company Number: GBWYE632629APR05

PATIENT
  Sex: Female

DRUGS (2)
  1. ENBREL [Suspect]
     Indication: RHEUMATOID ARTHRITIS
     Route: 058
     Dates: start: 20040330, end: 20040502
  2. DICLOFENAC [Concomitant]

REACTIONS (4)
  - ABDOMINAL PAIN [None]
  - CONDITION AGGRAVATED [None]
  - DIARRHOEA [None]
  - RHEUMATOID ARTHRITIS [None]
